FAERS Safety Report 9371442 (Version 1)
Quarter: 2013Q2

REPORT INFORMATION
  Report Type: Spontaneous
  Country: US (occurrence: US)
  Receive Date: 20130627
  Receipt Date: 20130627
  Transmission Date: 20140414
  Serious: Yes (Other)
  Sender: FDA-Public Use
  Company Number: US-UCBSA-089566

PATIENT
  Sex: Male

DRUGS (2)
  1. ATORVASTATIN [Suspect]
     Dosage: TOTAL DAILY DOSE: 40 MG
     Dates: start: 2012, end: 2012
  2. ROSUVASTATIN [Concomitant]
     Dosage: UNKNOWN DOSE

REACTIONS (1)
  - Hepatitis B [Recovered/Resolved]
